FAERS Safety Report 6034793-7 (Version None)
Quarter: 2009Q1

REPORT INFORMATION
  Report Type: 
  Country: None (occurrence: None)
  Receive Date: 20090112
  Receipt Date: 20090106
  Transmission Date: 20090719
  Serious: Yes (Other)
  Sender: FDA-Public Use
  Company Number: US-JNJFOC-20090101513

PATIENT
  Sex: Female
  Weight: 106.6 kg

DRUGS (1)
  1. DURAGESIC-100 [Suspect]
     Indication: BONE PAIN
     Route: 062

REACTIONS (8)
  - ACTIVITIES OF DAILY LIVING IMPAIRED [None]
  - APPLICATION SITE RASH [None]
  - DEVICE LEAKAGE [None]
  - DIZZINESS [None]
  - HYPERSOMNIA [None]
  - HYPERTENSION [None]
  - MEMORY IMPAIRMENT [None]
  - WITHDRAWAL SYNDROME [None]
